FAERS Safety Report 6701752-8 (Version None)
Quarter: 2010Q2

REPORT INFORMATION
  Report Type: 
  Country: None (occurrence: None)
  Receive Date: 20100429
  Receipt Date: 20100422
  Transmission Date: 20101027
  Serious: Yes (Hospitalization)
  Sender: FDA-Public Use
  Company Number: PHHY2010AT25423

PATIENT
  Age: 82 Year
  Sex: Female

DRUGS (1)
  1. EXELON [Suspect]
     Route: 062

REACTIONS (3)
  - BLOOD POTASSIUM ABNORMAL [None]
  - BLOOD SODIUM ABNORMAL [None]
  - ELECTROLYTE IMBALANCE [None]
